FAERS Safety Report 11813477 (Version 1)
Quarter: 2015Q4

REPORT INFORMATION
  Report Type: Spontaneous
  Country: None (occurrence: None)
  Receive Date: 20151208
  Receipt Date: 20151208
  Transmission Date: 20160305
  Serious: Yes (Hospitalization)
  Sender: FDA-Public Use
  Company Number: None

PATIENT
  Age: 67 Year
  Sex: Male
  Weight: 94 kg

DRUGS (1)
  1. JARDIANCE [Suspect]
     Active Substance: EMPAGLIFLOZIN
     Indication: DIABETES MELLITUS
     Route: 048
     Dates: start: 20151001, end: 20151128

REACTIONS (8)
  - Decreased appetite [None]
  - Metabolic acidosis [None]
  - Urine output decreased [None]
  - Bowel movement irregularity [None]
  - Condition aggravated [None]
  - Nausea [None]
  - Abdominal pain upper [None]
  - Retching [None]

NARRATIVE: CASE EVENT DATE: 20151128
